FAERS Safety Report 6926587-2 (Version None)
Quarter: 2010Q3

REPORT INFORMATION
  Report Type: 
  Country: None (occurrence: None)
  Receive Date: 20100816
  Receipt Date: 20100806
  Transmission Date: 20110219
  Serious: Yes (Death, Other)
  Sender: FDA-Public Use
  Company Number: US-ABBOTT-10P-163-0656510-00

PATIENT
  Sex: Female

DRUGS (1)
  1. ZEMPLAR [Suspect]
     Indication: RENAL FAILURE CHRONIC

REACTIONS (5)
  - FALL [None]
  - HEAD INJURY [None]
  - HIP FRACTURE [None]
  - HYPOTENSION [None]
  - RENAL FAILURE CHRONIC [None]
